FAERS Safety Report 6043717-8 (Version None)
Quarter: 2009Q1

REPORT INFORMATION
  Report Type: 
  Country: None (occurrence: None)
  Receive Date: 20090120
  Receipt Date: 20090109
  Transmission Date: 20090719
  Serious: Yes (Hospitalization, Other)
  Sender: FDA-Public Use
  Company Number: PHBS2009US00484

PATIENT
  Age: 72 Year
  Sex: Female

DRUGS (3)
  1. ZOLEDRONIC ACID [Suspect]
     Indication: MULTIPLE MYELOMA
     Dosage: 4 MG, QW3
     Route: 042
  2. PAMIDRONATE DISODIUM [Suspect]
     Indication: MULTIPLE MYELOMA
     Dosage: 30-60 MG Q MONTHLY
     Route: 042
  3. MELPHALAN [Concomitant]
     Indication: MULTIPLE MYELOMA

REACTIONS (6)
  - FEMORAL NECK FRACTURE [None]
  - JOINT ARTHROPLASTY [None]
  - MOVEMENT DISORDER [None]
  - NUCLEAR MAGNETIC RESONANCE IMAGING ABDOMINAL [None]
  - OSTEOPENIA [None]
  - PAIN IN EXTREMITY [None]
